FAERS Safety Report 17307600 (Version 2)
Quarter: 2021Q1

REPORT INFORMATION
  Report Type: Spontaneous
  Country: US (occurrence: US)
  Receive Date: 20200123
  Receipt Date: 20210301
  Transmission Date: 20210419
  Serious: Yes (Life-Threatening, Hospitalization)
  Sender: FDA-Public Use
  Company Number: US-BRISTOL-MYERS SQUIBB COMPANY-BMS-2020-004853

PATIENT
  Age: 42 Year
  Sex: Male

DRUGS (1)
  1. COUMADIN [Suspect]
     Active Substance: WARFARIN SODIUM
     Indication: TRICUSPID VALVE REPLACEMENT
     Dosage: UNK
     Route: 065

REACTIONS (2)
  - Anticoagulation drug level above therapeutic [Recovering/Resolving]
  - Haemoptysis [Recovered/Resolved]
